FAERS Safety Report 7596622-X (Version None)
Quarter: 2011Q3

REPORT INFORMATION
  Report Type: 
  Country: None (occurrence: None)
  Receive Date: 20110708
  Receipt Date: 20110624
  Transmission Date: 20111222
  Serious: Yes (Hospitalization)
  Sender: FDA-Public Use
  Company Number: JP-JNJFOC-20110105857

PATIENT
  Age: 71 Year
  Sex: Male
  Weight: 65 kg

DRUGS (13)
  1. REMICADE [Suspect]
     Route: 042
     Dates: start: 20100511
  2. RINDERON- VG [Concomitant]
     Route: 065
  3. DIACORT [Concomitant]
  4. RINDERON- VG [Concomitant]
     Indication: PSORIASIS
     Route: 065
  5. BETNOVAT [Concomitant]
  6. REMICADE [Suspect]
     Indication: PSORIASIS
     Route: 042
     Dates: start: 20100928
  7. BETNOVAT [Concomitant]
     Indication: PSORIASIS
  8. REMICADE [Suspect]
     Route: 042
     Dates: start: 20100427
  9. SULFAMETHOXAZOLE [Concomitant]
     Indication: PROPHYLAXIS
     Dosage: 1 TAB
     Route: 048
     Dates: start: 20100426, end: 20101031
  10. DIACORT [Concomitant]
     Indication: PSORIASIS
  11. REMICADE [Suspect]
     Route: 042
     Dates: start: 20100803
  12. REMICADE [Suspect]
     Route: 042
     Dates: start: 20100608
  13. ISONIAZID [Concomitant]
     Indication: ANTIBIOTIC PROPHYLAXIS
     Dates: start: 20100426, end: 20101031

REACTIONS (1)
  - PANCREATIC CARCINOMA [None]
